FAERS Safety Report 12554353 (Version 1)
Quarter: 2016Q3

REPORT INFORMATION
  Report Type: Spontaneous
  Country: US (occurrence: US)
  Receive Date: 20160713
  Receipt Date: 20160713
  Transmission Date: 20161109
  Serious: No
  Sender: FDA-Public Use
  Company Number: US-GLAXOSMITHKLINE-US2016094102

PATIENT
  Sex: Female

DRUGS (10)
  1. BREO ELLIPTA [Suspect]
     Active Substance: FLUTICASONE FUROATE\VILANTEROL TRIFENATATE
     Indication: CHRONIC OBSTRUCTIVE PULMONARY DISEASE
     Dosage: 1 PUFF(S), 1D
     Route: 055
     Dates: start: 201604
  2. DULERA [Suspect]
     Active Substance: FORMOTEROL FUMARATE DIHYDRATE\MOMETASONE FUROATE
     Indication: CHRONIC OBSTRUCTIVE PULMONARY DISEASE
     Dosage: 2 PUFF(S), BID
     Route: 055
  3. DYMISTA [Concomitant]
     Active Substance: AZELASTINE HYDROCHLORIDE\FLUTICASONE PROPIONATE
  4. FUROSEMIDE. [Concomitant]
     Active Substance: FUROSEMIDE
  5. THYROXINE [Concomitant]
     Active Substance: LEVOTHYROXINE
  6. ADVAIR HFA [Suspect]
     Active Substance: FLUTICASONE PROPIONATE\SALMETEROL XINAFOATE
     Indication: PRODUCT USED FOR UNKNOWN INDICATION
     Dosage: UNK
     Dates: start: 2006
  7. SPIRIVA [Concomitant]
     Active Substance: TIOTROPIUM BROMIDE MONOHYDRATE
     Indication: PRODUCT USED FOR UNKNOWN INDICATION
  8. QVAR [Suspect]
     Active Substance: BECLOMETHASONE DIPROPIONATE
     Indication: CHRONIC OBSTRUCTIVE PULMONARY DISEASE
     Dosage: 2 PUFF(S), BID
  9. LATANOPROST. [Concomitant]
     Active Substance: LATANOPROST
  10. PRILOSEC [Concomitant]
     Active Substance: OMEPRAZOLE MAGNESIUM

REACTIONS (2)
  - Joint swelling [Not Recovered/Not Resolved]
  - Labelled drug-drug interaction medication error [Unknown]
